FAERS Safety Report 11911031 (Version 4)
Quarter: 2016Q4

REPORT INFORMATION
  Report Type: Report from Study
  Country: JP (occurrence: JP)
  Receive Date: 20160112
  Receipt Date: 20161206
  Transmission Date: 20170206
  Serious: Yes (Death, Life-Threatening, Hospitalization, Other)
  Sender: FDA-Public Use
  Company Number: JP-INCYTE CORPORATION-2015IN006989

PATIENT
  Age: 50 Year
  Sex: Female

DRUGS (31)
  1. DANAZOL. [Concomitant]
     Active Substance: DANAZOL
     Indication: MYELOFIBROSIS
     Dosage: 200 MG, UNK
     Route: 048
     Dates: end: 20150128
  2. RED CELLS CONCENTRATES-LEUKOCYTES REDUCED [Concomitant]
     Dosage: 4 IU, UNK
     Route: 065
     Dates: end: 20141211
  3. RED CELLS CONCENTRATES-LEUKOCYTES REDUCED [Concomitant]
     Dosage: 4 IU, UNK
     Route: 065
     Dates: end: 20150423
  4. HYDREA [Concomitant]
     Active Substance: HYDROXYUREA
  5. HYDREA [Concomitant]
     Active Substance: HYDROXYUREA
  6. RED CELLS CONCENTRATES-LEUKOCYTES REDUCED [Concomitant]
     Dosage: 4 IU, UNK
     Route: 065
     Dates: end: 20150226
  7. RED CELLS CONCENTRATES-LEUKOCYTES REDUCED [Concomitant]
     Dosage: 4 DF, UNK
     Dates: end: 20160423
  8. HYDREA [Concomitant]
     Active Substance: HYDROXYUREA
     Indication: MYELOFIBROSIS
     Dosage: 500 MG, UNK
     Route: 048
  9. RED CELLS CONCENTRATES-LEUKOCYTES REDUCED [Concomitant]
     Indication: MYELOFIBROSIS
     Dosage: 4 IU, UNK
     Route: 065
     Dates: end: 20150423
  10. RED CELLS CONCENTRATES-LEUKOCYTES REDUCED [Concomitant]
     Dosage: 4 IU, UNK
     Route: 065
     Dates: end: 20150108
  11. RED CELLS CONCENTRATES-LEUKOCYTES REDUCED [Concomitant]
     Dosage: 4 IU, UNK
     Route: 065
     Dates: end: 20150305
  12. PREDONINE [Suspect]
     Active Substance: PREDNISOLONE\PREDNISOLONE ACETATE\PREDNISOLONE SODIUM SUCCINATE
     Indication: MYELOFIBROSIS
     Dosage: 10 MG, QD
     Route: 048
  13. BAKTAR [Concomitant]
     Active Substance: SULFAMETHOXAZOLE\TRIMETHOPRIM
     Dosage: 1 G, UNK
     Route: 048
  14. RED CELLS CONCENTRATES-LEUKOCYTES REDUCED [Concomitant]
     Dosage: 4 IU, UNK
     Route: 065
     Dates: end: 20141127
  15. RED CELLS CONCENTRATES-LEUKOCYTES REDUCED [Concomitant]
     Dosage: 4 IU, UNK
     Route: 065
     Dates: end: 20150115
  16. RED CELLS CONCENTRATES-LEUKOCYTES REDUCED [Concomitant]
     Dosage: 4 IU, UNK
     Route: 065
     Dates: end: 20150129
  17. RED CELLS CONCENTRATES-LEUKOCYTES REDUCED [Concomitant]
     Dosage: 4 IU, UNK
     Route: 065
     Dates: end: 20150326
  18. RED CELLS CONCENTRATES-LEUKOCYTES REDUCED [Concomitant]
     Dosage: 4 IU, UNK
     Dates: end: 20160416
  19. BAKTAR [Concomitant]
     Active Substance: SULFAMETHOXAZOLE\TRIMETHOPRIM
     Indication: PRODUCT USED FOR UNKNOWN INDICATION
  20. RED CELLS CONCENTRATES-LEUKOCYTES REDUCED [Concomitant]
     Dosage: 4 IU, UNK
     Route: 065
     Dates: end: 20141225
  21. FLUCONAZOLE. [Concomitant]
     Active Substance: FLUCONAZOLE
     Indication: PRODUCT USED FOR UNKNOWN INDICATION
     Dosage: 200 MG, UNK
     Route: 048
  22. BAKTAR [Concomitant]
     Active Substance: SULFAMETHOXAZOLE\TRIMETHOPRIM
     Indication: INFECTION PROPHYLAXIS
     Dosage: 1 G, UNK
     Route: 048
  23. RED CELLS CONCENTRATES-LEUKOCYTES REDUCED [Concomitant]
     Dosage: 4 IU, UNK
     Route: 065
     Dates: end: 20141120
  24. RED CELLS CONCENTRATES-LEUKOCYTES REDUCED [Concomitant]
     Dosage: 4 IU, UNK
     Route: 065
     Dates: end: 20150312
  25. JAKAVI [Suspect]
     Active Substance: RUXOLITINIB
     Indication: MYELOFIBROSIS
     Dosage: 5 MG, QD
     Route: 048
     Dates: start: 20150326, end: 20150408
  26. FLUCONAZOLE. [Concomitant]
     Active Substance: FLUCONAZOLE
     Indication: INFECTION PROPHYLAXIS
     Dosage: 200 MG, UNK
     Route: 048
  27. RED CELLS CONCENTRATES-LEUKOCYTES REDUCED [Concomitant]
     Dosage: 4 IU, UNK
     Route: 065
     Dates: end: 20150217
  28. RED CELLS CONCENTRATES-LEUKOCYTES REDUCED [Concomitant]
     Dosage: 4 IU, UNK
     Route: 065
     Dates: end: 20150402
  29. FLUCONAZOLE. [Concomitant]
     Active Substance: FLUCONAZOLE
     Dosage: 200 MG, UNK
     Route: 048
  30. RED CELLS CONCENTRATES-LEUKOCYTES REDUCED [Concomitant]
     Dosage: 4 IU, UNK
     Route: 065
     Dates: end: 20150205
  31. RED CELLS CONCENTRATES-LEUKOCYTES REDUCED [Concomitant]
     Dosage: 4 IU, UNK
     Route: 065
     Dates: end: 20150409

REACTIONS (7)
  - Leukaemia [Not Recovered/Not Resolved]
  - Cellulitis [Unknown]
  - Shock [Fatal]
  - Diarrhoea [Not Recovered/Not Resolved]
  - Skin erosion [Unknown]
  - Back pain [Unknown]
  - Hypotension [Not Recovered/Not Resolved]

NARRATIVE: CASE EVENT DATE: 20150330
